FAERS Safety Report 5630351-4 (Version None)
Quarter: 2008Q1

REPORT INFORMATION
  Report Type: 
  Country: None (occurrence: None)
  Receive Date: 20080219
  Receipt Date: 20080215
  Transmission Date: 20080703
  Serious: Yes (Death, Life-Threatening)
  Sender: FDA-Public Use
  Company Number: PHHY2008JP01423

PATIENT
  Age: 56 Year
  Sex: Female

DRUGS (6)
  1. PROGRAF [Suspect]
     Indication: RENAL TRANSPLANT
     Dosage: 3 MG/DAY
     Route: 048
     Dates: start: 20041201, end: 20050401
  2. CELLCEPT [Suspect]
     Indication: RENAL TRANSPLANT
     Dosage: 1000 MG/ DAY
     Route: 048
     Dates: start: 20041201
  3. METHYLPREDNISOLONE [Suspect]
     Indication: RENAL TRANSPLANT
     Dates: start: 20040101
  4. SIMULECT [Suspect]
     Indication: RENAL TRANSPLANT
     Dosage: 20 MG, ONCE/SINGLE
     Route: 042
     Dates: start: 20041201, end: 20041201
  5. SIMULECT [Suspect]
     Dosage: 20 MG, ONCE/SINGLE
     Route: 042
     Dates: start: 20041205, end: 20041205
  6. RITUXIMAB [Suspect]
     Indication: RENAL TRANSPLANT
     Dosage: 500 MG/ DAY
     Route: 042
     Dates: start: 20050901, end: 20060101

REACTIONS (5)
  - LYMPHOMA [None]
  - LYMPHOPROLIFERATIVE DISORDER [None]
  - MALAISE [None]
  - PNEUMONIA [None]
  - RENAL CELL CARCINOMA [None]
